FAERS Safety Report 19954291 (Version 1)
Quarter: 2021Q4

REPORT INFORMATION
  Report Type: Spontaneous
  Country: SE (occurrence: SE)
  Receive Date: 20211013
  Receipt Date: 20211013
  Transmission Date: 20220303
  Serious: Yes (Disabling, Other)
  Sender: FDA-Public Use
  Company Number: None

PATIENT
  Age: 29 Year
  Sex: Female
  Weight: 60 kg

DRUGS (2)
  1. ABILIFY MAINTENA [Suspect]
     Active Substance: ARIPIPRAZOLE
     Indication: Psychotic disorder
     Dosage: 400 MG, EVERY 4 WEEKS
     Route: 030
     Dates: start: 20201112
  2. PROPIOMAZINE [Suspect]
     Active Substance: PROPIOMAZINE
     Indication: Insomnia
     Dosage: 25 MG, AS NECESSARY
     Route: 048

REACTIONS (5)
  - Hypertonia [Recovering/Resolving]
  - Akathisia [Recovering/Resolving]
  - Tremor [Recovering/Resolving]
  - Dyskinesia [Recovered/Resolved]
  - Product use in unapproved indication [Unknown]

NARRATIVE: CASE EVENT DATE: 20201112
